FAERS Safety Report 5081224-X (Version None)
Quarter: 2006Q3

REPORT INFORMATION
  Report Type: 
  Country: None (occurrence: None)
  Receive Date: 20060810
  Receipt Date: 20060728
  Transmission Date: 20061208
  Serious: Yes (Hospitalization)
  Sender: FDA-Public Use
  Company Number: 2006-146103-NL

PATIENT
  Age: 33 Year
  Sex: Female
  Weight: 61.4 kg

DRUGS (1)
  1. NUVARING [Suspect]
     Indication: CONTRACEPTION
     Dosage: VAGINAL
     Route: 067
     Dates: start: 20060601

REACTIONS (2)
  - ORAL CANDIDIASIS [None]
  - PNEUMONIA ASPIRATION [None]
